FAERS Safety Report 8885210 (Version 1)
Quarter: 2012Q4

REPORT INFORMATION
  Report Type: Report from Study
  Country: BR (occurrence: BR)
  Receive Date: 20121101
  Receipt Date: 20121101
  Transmission Date: 20130627
  Serious: Yes (Other)
  Sender: FDA-Public Use
  Company Number: BR-ROCHE-1151364

PATIENT
  Age: 66 Year
  Sex: Female
  Weight: 52 kg

DRUGS (6)
  1. CAPECITABINE [Suspect]
     Indication: PRODUCT USED FOR UNKNOWN INDICATION
     Dosage: First line therapy:8 cycles performed
     Route: 065
     Dates: start: 20110425, end: 20111031
  2. CAPECITABINE [Suspect]
     Dosage: Second line therapy:22 cycles performed
     Route: 065
     Dates: start: 20111130, end: 20120709
  3. BEVACIZUMAB [Suspect]
     Indication: PRODUCT USED FOR UNKNOWN INDICATION
     Dosage: 24 infusions given
     Route: 065
     Dates: start: 20111130, end: 20120709
  4. OXALIPLATIN [Concomitant]
     Dosage: 8 cycles performed
     Route: 065
     Dates: start: 20110425, end: 20111031
  5. IRINOTECAN [Concomitant]
     Dosage: 22 cycles performed cycle length 3 weeks with 21 days interval
     Route: 065
     Dates: start: 20111130, end: 20120709
  6. VECTIBIX [Concomitant]
     Dosage: third line
     Route: 065
     Dates: start: 20120903, end: 20121030

REACTIONS (1)
  - Disease progression [Unknown]
